FAERS Safety Report 13630398 (Version 1)
Quarter: 2017Q2

REPORT INFORMATION
  Report Type: Spontaneous
  Country: US (occurrence: US)
  Receive Date: 20170531
  Receipt Date: 20170531
  Transmission Date: 20170830
  Serious: No
  Sender: FDA-Public Use
  Company Number: US-ASTELLAS-1299323

PATIENT
  Age: 64 Year
  Sex: Female
  Weight: 120.76 kg

DRUGS (8)
  1. PAXIL [Concomitant]
     Active Substance: PAROXETINE HYDROCHLORIDE
     Indication: ANXIETY
     Route: 048
  2. CLARITIN [Concomitant]
     Active Substance: LORATADINE
     Indication: HYPERSENSITIVITY
     Route: 065
  3. TARCEVA [Suspect]
     Active Substance: ERLOTINIB HYDROCHLORIDE
     Indication: LUNG NEOPLASM MALIGNANT
     Route: 048
     Dates: start: 20131019, end: 20131026
  4. CLINDAMYCIN. [Concomitant]
     Active Substance: CLINDAMYCIN
     Route: 048
  5. SYNTHROID [Concomitant]
     Active Substance: LEVOTHYROXINE SODIUM
     Indication: HYPOTHYROIDISM
     Route: 048
  6. TARCEVA [Suspect]
     Active Substance: ERLOTINIB HYDROCHLORIDE
     Dosage: DOSE REDUCED
     Route: 048
     Dates: start: 20131107, end: 20131127
  7. TARCEVA [Suspect]
     Active Substance: ERLOTINIB HYDROCHLORIDE
     Dosage: DOSE REDUCED
     Route: 048
     Dates: start: 20131203
  8. MINOCYCLINE [Concomitant]
     Active Substance: MINOCYCLINE\MINOCYCLINE HYDROCHLORIDE
     Indication: FOLLICULITIS
     Route: 065

REACTIONS (8)
  - Diarrhoea [Unknown]
  - Eating disorder [Unknown]
  - Rash [Unknown]
  - Rash [Recovered/Resolved]
  - Stomatitis [Unknown]
  - Folliculitis [Unknown]
  - Mucosal inflammation [Unknown]
  - Glossitis [Unknown]

NARRATIVE: CASE EVENT DATE: 20131024
